FAERS Safety Report 25790734 (Version 2)
Quarter: 2025Q4

REPORT INFORMATION
  Report Type: Spontaneous
  Country: GB (occurrence: GB)
  Receive Date: 20250911
  Receipt Date: 20251020
  Transmission Date: 20260117
  Serious: Yes (Hospitalization)
  Sender: MYLAN
  Company Number: GB-MYLANLABS-2025M1077039

PATIENT
  Sex: Male

DRUGS (15)
  1. CLOZARIL [Suspect]
     Active Substance: CLOZAPINE
     Indication: Schizophrenia
     Dosage: UNK, BID (225MG ,  325MG OM/ON)
     Dates: start: 20120727
  2. LITHIUM CARBONATE [Concomitant]
     Active Substance: LITHIUM CARBONATE
     Indication: Affective disorder
     Dosage: 1200 MILLIGRAM, PM (ON; NIGHT)
  3. SCOPOLAMINE HYDROBROMIDE [Concomitant]
     Active Substance: SCOPOLAMINE HYDROBROMIDE
     Indication: Salivary hypersecretion
     Dosage: 300 MICROGRAM, BID (BD)
  4. METFORMIN [Concomitant]
     Active Substance: METFORMIN HYDROCHLORIDE
     Indication: Type 2 diabetes mellitus
     Dosage: 1 GRAM, BID (BD)
  5. BISOPROLOL [Concomitant]
     Active Substance: BISOPROLOL
     Indication: Hypertension
     Dosage: 2.5 MILLIGRAM, AM (OM)
  6. LANSOPRAZOLE [Concomitant]
     Active Substance: LANSOPRAZOLE
     Indication: Gastrooesophageal reflux disease
     Dosage: 10 MILLIGRAM, AM (OM)
  7. AMLODIPINE [Concomitant]
     Active Substance: AMLODIPINE BESYLATE
     Indication: Hypertension
     Dosage: 5 MILLIGRAM, AM (OM)
  8. DAPAGLIFLOZIN [Concomitant]
     Active Substance: DAPAGLIFLOZIN
     Indication: Type 2 diabetes mellitus
     Dosage: 10 MILLIGRAM, AM (OM)
  9. DOCUSATE SODIUM [Concomitant]
     Active Substance: DOCUSATE SODIUM
     Indication: Constipation
     Dosage: 100 MILLIGRAM, BID (OM)
  10. ATORVASTATIN [Concomitant]
     Active Substance: ATORVASTATIN
     Indication: Hypercholesterolaemia
     Dosage: 20 MILLIGRAM, PM (ON)
  11. RYBELSUS [Concomitant]
     Active Substance: SEMAGLUTIDE
     Indication: Type 2 diabetes mellitus
     Dosage: 14 MILLIGRAM, AM (OM)
  12. RYBELSUS [Concomitant]
     Active Substance: SEMAGLUTIDE
     Indication: Weight decreased
  13. MONTELUKAST [Concomitant]
     Active Substance: MONTELUKAST
     Indication: Asthma
     Dosage: 10 MILLIGRAM, PM (ON)
  14. THEOPHYLLINE ANHYDROUS [Concomitant]
     Active Substance: THEOPHYLLINE ANHYDROUS
     Indication: Asthma
     Dosage: 200 MILLIGRAM, BID
  15. NALMEFENE [Concomitant]
     Active Substance: NALMEFENE
     Indication: Alcoholism
     Dosage: 18 MILLIGRAM (OD PRN, PRESCRI BED BY ADDICTIONS SERVICE DURING ADMISSION)

REACTIONS (4)
  - Intentional self-injury [Unknown]
  - Substance abuse [Unknown]
  - Alcohol abuse [Unknown]
  - Antipsychotic drug level increased [Unknown]

NARRATIVE: CASE EVENT DATE: 20250912
